FAERS Safety Report 4519969-X (Version None)
Quarter: 2004Q4

REPORT INFORMATION
  Report Type: 
  Country: None (occurrence: None)
  Receive Date: 20041201
  Receipt Date: 20041201
  Transmission Date: 20050328
  Serious: Yes (Life-Threatening, Hospitalization)
  Sender: FDA-Public Use
  Company Number: None

PATIENT
  Age: 83 Year
  Sex: Male
  Weight: 70.3 kg

DRUGS (2)
  1. GLYBURIDE [Suspect]
  2. GATIFLOXACIN [Concomitant]

REACTIONS (1)
  - HYPOGLYCAEMIA [None]
